FAERS Safety Report 17687045 (Version 1)
Quarter: 2020Q2

REPORT INFORMATION
  Report Type: Spontaneous
  Country: CH (occurrence: CH)
  Receive Date: 20200421
  Receipt Date: 20200421
  Transmission Date: 20200714
  Serious: Yes (Other)
  Sender: FDA-Public Use
  Company Number: CH-ADIENNEP-2020AD000223

PATIENT
  Age: 41 Year

DRUGS (3)
  1. VANCOMYCIN [Concomitant]
     Active Substance: VANCOMYCIN
  2. CARMUSTINE. [Suspect]
     Active Substance: CARMUSTINE
     Indication: CHEMOTHERAPY
     Dosage: 400 MG/M2
     Dates: start: 20180723, end: 20180723
  3. THIOTEPA. [Suspect]
     Active Substance: THIOTEPA
     Indication: CHEMOTHERAPY
     Dosage: 5 MG/KG,
     Dates: start: 20180723, end: 20180723

REACTIONS (2)
  - Stomatitis [Unknown]
  - Febrile neutropenia [Unknown]
